FAERS Safety Report 5570964-1 (Version None)
Quarter: 2007Q4

REPORT INFORMATION
  Report Type: 
  Country: None (occurrence: None)
  Receive Date: 20071221
  Receipt Date: 20071212
  Transmission Date: 20080405
  Serious: Yes (Hospitalization)
  Sender: FDA-Public Use
  Company Number: US-AMGEN-QUU256755

PATIENT
  Sex: Female

DRUGS (3)
  1. ENBREL [Suspect]
     Indication: RHEUMATOID ARTHRITIS
     Route: 058
     Dates: start: 20001201
  2. METHOTREXATE [Concomitant]
     Route: 048
     Dates: start: 19980101
  3. COUMADIN [Concomitant]

REACTIONS (3)
  - GLAUCOMA [None]
  - MITRAL VALVE PROLAPSE [None]
  - TRANSIENT ISCHAEMIC ATTACK [None]
